FAERS Safety Report 7200754-5 (Version None)
Quarter: 2010Q4

REPORT INFORMATION
  Report Type: 
  Country: None (occurrence: None)
  Receive Date: 20101228
  Receipt Date: 20101218
  Transmission Date: 20110411
  Serious: Yes (Other)
  Sender: FDA-Public Use
  Company Number: B0690708A

PATIENT
  Age: 84 Year
  Sex: Female

DRUGS (1)
  1. SUMATRIPTAN SUCCINATE [Suspect]
     Indication: HEADACHE
     Route: 065
     Dates: start: 20101201

REACTIONS (3)
  - ASTHENIA [None]
  - BALANCE DISORDER [None]
  - OFF LABEL USE [None]
